FAERS Safety Report 10028924 (Version 2)
Quarter: 2014Q1

REPORT INFORMATION
  Report Type: Spontaneous
  Country: DE (occurrence: DE)
  Receive Date: 20140321
  Receipt Date: 20140321
  Transmission Date: 20141002
  Serious: Yes (Other)
  Sender: FDA-Public Use
  Company Number: PHHY2014DE009213

PATIENT
  Age: 63 Year
  Sex: Female

DRUGS (8)
  1. LEPONEX [Suspect]
     Indication: SCHIZOPHRENIA
     Dosage: 100 MG (2 PER 0.5 DF AND 2 PER 1 DF)
     Route: 048
  2. SIOFOR [Suspect]
     Indication: DIABETES MELLITUS
     Dosage: 100 MG PER DAY
     Route: 048
  3. BISOPROLOL [Concomitant]
     Indication: HYPERTENSION
     Dosage: 5 MG (0.5 DF QD)
  4. RAMIPRIL [Concomitant]
     Indication: HYPERTENSION
     Dosage: 1 DF, (2.5/12.5 MG) QD
  5. METFORMIN [Concomitant]
     Dosage: 1000 MG, UNK
  6. SIMVASTATIN [Concomitant]
     Dosage: 30 MG, UNK
  7. ATORVASTATIN [Concomitant]
     Indication: HYPERLIPIDAEMIA
     Dosage: 1 DF, QD
     Route: 048
     Dates: start: 20140108
  8. CLOMIPRAMIN [Concomitant]
     Indication: PSYCHOTIC DISORDER
     Dosage: 1 DF, QID
     Route: 048

REACTIONS (2)
  - Gastrointestinal inflammation [Unknown]
  - Diarrhoea [Unknown]
